FAERS Safety Report 8416976-1 (Version None)
Quarter: 2012Q2

REPORT INFORMATION
  Report Type: 
  Country: None (occurrence: None)
  Receive Date: 20120606
  Receipt Date: 20120530
  Transmission Date: 20120825
  Serious: Yes (Hospitalization)
  Sender: FDA-Public Use
  Company Number: BR-BAXTER-2012BAX000423

PATIENT
  Age: 66 Year
  Sex: Female

DRUGS (1)
  1. TISSUCOL STIM4 [Suspect]
     Route: 065

REACTIONS (3)
  - MENINGITIS [None]
  - OEDEMA [None]
  - CEREBROSPINAL FISTULA [None]
